FAERS Safety Report 14331686 (Version 1)
Quarter: 2017Q4

REPORT INFORMATION
  Report Type: Spontaneous
  Country: DE (occurrence: DE)
  Receive Date: 20171228
  Receipt Date: 20171228
  Transmission Date: 20180321
  Serious: Yes (Other)
  Sender: FDA-Public Use
  Company Number: DE-009507513-1712DEU009194

PATIENT
  Age: 74 Year
  Sex: Male

DRUGS (14)
  1. LANTUS [Interacting]
     Active Substance: INSULIN GLARGINE
     Dosage: UNK
     Route: 048
  2. TOREM [Interacting]
     Active Substance: TORSEMIDE
     Dosage: UNK
     Route: 048
  3. DONEPEZIL. [Interacting]
     Active Substance: DONEPEZIL
     Dosage: UNK
     Route: 048
  4. TAMSULOSIN HYDROCHLORIDE. [Interacting]
     Active Substance: TAMSULOSIN HYDROCHLORIDE
     Dosage: UNK
     Route: 048
  5. APIDRA [Interacting]
     Active Substance: INSULIN GLULISINE
     Dosage: UNK
     Route: 048
  6. FALITHROM [Interacting]
     Active Substance: PHENPROCOUMON
     Dosage: UNK
     Route: 048
  7. CANDECOR COMP [Interacting]
     Active Substance: CANDESARTAN CILEXETIL\HYDROCHLOROTHIAZIDE
     Dosage: UNK
     Route: 048
  8. ALLO [Interacting]
     Active Substance: ALLOPURINOL
     Dosage: UNK
     Route: 048
  9. SIMVASTATIN. [Suspect]
     Active Substance: SIMVASTATIN
     Dosage: UNK
     Route: 048
  10. METFORMIN [Interacting]
     Active Substance: METFORMIN HYDROCHLORIDE
     Dosage: 500 MG, UNK
     Route: 048
  11. BISOPROLOL [Interacting]
     Active Substance: BISOPROLOL
     Dosage: UNK
     Route: 048
  12. LEVOMEPROMAZINE [Interacting]
     Active Substance: LEVOMEPROMAZINE
     Dosage: UNK
     Route: 048
  13. SEROQUEL [Interacting]
     Active Substance: QUETIAPINE FUMARATE
     Dosage: UNK
     Route: 048
  14. RISPERDAL [Interacting]
     Active Substance: RISPERIDONE
     Dosage: UNK
     Route: 048

REACTIONS (10)
  - Blood glucose abnormal [Unknown]
  - Renal failure [Unknown]
  - Contusion [Unknown]
  - Gastric haemorrhage [Unknown]
  - Dizziness [Unknown]
  - Drug interaction [Unknown]
  - Confusional state [Unknown]
  - Intestinal haemorrhage [Unknown]
  - Hyperhidrosis [Unknown]
  - Adverse drug reaction [Unknown]
